FAERS Safety Report 16306893 (Version 1)
Quarter: 2019Q2

REPORT INFORMATION
  Report Type: Spontaneous
  Country: CA (occurrence: CA)
  Receive Date: 20190513
  Receipt Date: 20190513
  Transmission Date: 20190711
  Serious: Yes (Hospitalization)
  Sender: FDA-Public Use
  Company Number: CA-ACTELION-A-NJ2019-190243

PATIENT
  Sex: Female

DRUGS (11)
  1. APIXABAN [Concomitant]
     Active Substance: APIXABAN
  2. PROBIOTIC [Concomitant]
     Active Substance: PROBIOTICS NOS
  3. LASIX [Concomitant]
     Active Substance: FUROSEMIDE
  4. MICRO K [Concomitant]
  5. RAMIPRIL. [Concomitant]
     Active Substance: RAMIPRIL
  6. VITAMIN D [Concomitant]
     Active Substance: VITAMIN D NOS
  7. HUMULIN NOS [Concomitant]
     Active Substance: INSULIN HUMAN
  8. METFORMIN [Concomitant]
     Active Substance: METFORMIN HYDROCHLORIDE
  9. AMIODARONE [Concomitant]
     Active Substance: AMIODARONE
  10. TRACLEER [Suspect]
     Active Substance: BOSENTAN
     Indication: PULMONARY ARTERIAL HYPERTENSION
     Dosage: 125 MG, BID
     Route: 048
     Dates: start: 20190322
  11. METOPROLOL. [Concomitant]
     Active Substance: METOPROLOL

REACTIONS (1)
  - Acute kidney injury [Not Recovered/Not Resolved]
